FAERS Safety Report 13703180 (Version 4)
Quarter: 2018Q1

REPORT INFORMATION
  Report Type: Report from Study
  Country: US (occurrence: US)
  Receive Date: 20170629
  Receipt Date: 20180209
  Transmission Date: 20180508
  Serious: No
  Sender: FDA-Public Use
  Company Number: PHEH2017US019983

PATIENT
  Sex: Male

DRUGS (1)
  1. ILARIS [Suspect]
     Active Substance: CANAKINUMAB
     Indication: PRODUCT USED FOR UNKNOWN INDICATION
     Dosage: UNK
     Route: 065

REACTIONS (13)
  - Arthralgia [Unknown]
  - Pain [Unknown]
  - Arthropathy [Unknown]
  - Joint swelling [Unknown]
  - Gait disturbance [Unknown]
  - Inappropriate schedule of drug administration [Unknown]
  - Knee deformity [Unknown]
  - Disease progression [Unknown]
  - Decreased activity [Unknown]
  - Insomnia [Unknown]
  - Depressed mood [Unknown]
  - Oropharyngeal pain [Unknown]
  - Cough [Unknown]
